FAERS Safety Report 6923078-X (Version None)
Quarter: 2010Q3

REPORT INFORMATION
  Report Type: 
  Country: None (occurrence: None)
  Receive Date: 20100813
  Receipt Date: 20100803
  Transmission Date: 20110219
  Serious: Yes (Hospitalization, Other)
  Sender: FDA-Public Use
  Company Number: TW-WATSON-2010-10554

PATIENT
  Age: 44 Year
  Sex: Male

DRUGS (3)
  1. DIPHENHYDRAMINE HYDROCHLORIDE (WATSON LABORATORIES) [Suspect]
     Indication: INSOMNIA
     Dosage: 180 MG, DAILY
     Route: 042
  2. NEFOPAM [Suspect]
     Indication: HEADACHE
     Dosage: 120 MG, SINGLE
     Route: 042
  3. NEFOPAM [Suspect]
     Dosage: UNK
     Route: 048

REACTIONS (14)
  - AGITATION [None]
  - DELIRIUM [None]
  - DEPENDENCE [None]
  - DISTURBANCE IN ATTENTION [None]
  - DRUG ABUSE [None]
  - DRUG TOLERANCE INCREASED [None]
  - ENCEPHALOPATHY [None]
  - HALLUCINATION, AUDITORY [None]
  - HEPATIC ENZYME INCREASED [None]
  - HYPERHIDROSIS [None]
  - INSOMNIA [None]
  - IRRITABILITY [None]
  - MEMORY IMPAIRMENT [None]
  - WITHDRAWAL SYNDROME [None]
